FAERS Safety Report 20942515 (Version 2)
Quarter: 2022Q2

REPORT INFORMATION
  Report Type: Spontaneous
  Country: US (occurrence: None)
  Receive Date: 20220610
  Receipt Date: 20220613
  Transmission Date: 20220721
  Serious: No
  Sender: FDA-Public Use
  Company Number: US-ROCHE-3114854

PATIENT
  Age: 33 Year
  Sex: Female
  Weight: 150 kg

DRUGS (2)
  1. OCREVUS [Suspect]
     Active Substance: OCRELIZUMAB
     Indication: Multiple sclerosis
     Route: 065
  2. PAXLOVID [Suspect]
     Active Substance: NIRMATRELVIR\RITONAVIR
     Indication: COVID-19
     Route: 065
     Dates: start: 20220516, end: 20220521

REACTIONS (3)
  - Rebound effect [Unknown]
  - SARS-CoV-2 test positive [Unknown]
  - Weight decreased [Unknown]

NARRATIVE: CASE EVENT DATE: 20220525
